FAERS Safety Report 8289800-8 (Version None)
Quarter: 2012Q2

REPORT INFORMATION
  Report Type: 
  Country: None (occurrence: None)
  Receive Date: 20120417
  Receipt Date: 20120413
  Transmission Date: 20120825
  Serious: No
  Sender: FDA-Public Use
  Company Number: US-PFIZER INC-2012092913

PATIENT
  Sex: Male

DRUGS (4)
  1. LORATADINE AND PSEUDOEPHEDRINE SULFATE [Suspect]
     Indication: SNEEZING
  2. LORATADINE AND PSEUDOEPHEDRINE SULFATE [Suspect]
     Indication: SEASONAL ALLERGY
  3. LORATADINE AND PSEUDOEPHEDRINE SULFATE [Suspect]
     Indication: HYPERSENSITIVITY
     Dosage: 5/120 MG, AS NEEDED
     Route: 048
     Dates: start: 20100701
  4. LORATADINE AND PSEUDOEPHEDRINE SULFATE [Suspect]
     Indication: NASAL CONGESTION

REACTIONS (1)
  - DRUG INEFFECTIVE [None]
